FAERS Safety Report 10229900 (Version 1)
Quarter: 2014Q2

REPORT INFORMATION
  Report Type: Spontaneous
  Country: US (occurrence: None)
  Receive Date: 20140610
  Receipt Date: 20140610
  Transmission Date: 20141212
  Serious: Yes (Other)
  Sender: FDA-Public Use
  Company Number: None

PATIENT
  Age: 80 Year
  Sex: Male
  Weight: 72.58 kg

DRUGS (1)
  1. BRILINTA 90 MG TABS [Suspect]
     Indication: ANTIPLATELET THERAPY
     Dosage: BY MOUTH
     Dates: start: 20140502, end: 20140516

REACTIONS (2)
  - Dyspnoea [None]
  - Insomnia [None]
